FAERS Safety Report 6560636-9 (Version None)
Quarter: 2010Q1

REPORT INFORMATION
  Report Type: 
  Country: None (occurrence: None)
  Receive Date: 20100129
  Receipt Date: 20090921
  Transmission Date: 20100710
  Serious: No
  Sender: FDA-Public Use
  Company Number: US-ABBOTT-09P-163-0598497-00

PATIENT
  Sex: Female
  Weight: 68.1 kg

DRUGS (8)
  1. HUMIRA [Suspect]
     Indication: RHEUMATOID ARTHRITIS
     Dosage: 2ND DOSE HELD IN JUN 2009 PER MD
     Dates: start: 20090602
  2. HUMIRA [Suspect]
     Dates: start: 20090701
  3. METHOTREXATE [Concomitant]
     Indication: RHEUMATOID ARTHRITIS
  4. FOSAMAX [Concomitant]
     Indication: BONE DENSITY DECREASED
  5. DETROL [Concomitant]
     Indication: URINARY INCONTINENCE
  6. LASIX [Concomitant]
     Indication: OEDEMA
  7. POTASSIUM [Concomitant]
     Indication: ELECTROLYTE SUBSTITUTION THERAPY
  8. FOLIC ACID [Concomitant]
     Indication: ROUTINE HEALTH MAINTENANCE

REACTIONS (1)
  - OEDEMA [None]
